FAERS Safety Report 23532254 (Version 1)
Quarter: 2024Q1

REPORT INFORMATION
  Report Type: Spontaneous
  Country: US (occurrence: US)
  Receive Date: 20240216
  Receipt Date: 20240216
  Transmission Date: 20240410
  Serious: No
  Sender: FDA-Public Use
  Company Number: US-Blueprint Medicines Corporation-2391

PATIENT
  Sex: Male

DRUGS (1)
  1. AYVAKIT [Suspect]
     Active Substance: AVAPRITINIB
     Indication: Gastrointestinal stromal tumour
     Route: 065
     Dates: start: 20230718

REACTIONS (8)
  - Nasopharyngitis [Unknown]
  - Sinus pain [Unknown]
  - Malaise [Unknown]
  - Dizziness [Unknown]
  - Chest discomfort [Unknown]
  - Cold sweat [Unknown]
  - Vomiting [Unknown]
  - Cough [Unknown]
